FAERS Safety Report 19044948 (Version 1)
Quarter: 2021Q1

REPORT INFORMATION
  Report Type: Spontaneous
  Country: US (occurrence: US)
  Receive Date: 20210322
  Receipt Date: 20210322
  Transmission Date: 20210420
  Serious: No
  Sender: FDA-Public Use
  Company Number: US-GALDERMA-US2020052693

PATIENT
  Sex: Female

DRUGS (4)
  1. PROACTIV MD DAILY OIL CONTROL SPF 30 [Suspect]
     Active Substance: AVOBENZONE\OCTISALATE\OCTOCRYLENE
     Indication: PIGMENTATION DISORDER
     Route: 061
  2. PROACTIV MD BALANCING TONER [Concomitant]
     Active Substance: COSMETICS
     Indication: PIGMENTATION DISORDER
     Route: 061
  3. PROACTIV MD ADAPALENE ACNE TREATMENT [Suspect]
     Active Substance: ADAPALENE
     Indication: PIGMENTATION DISORDER
     Dosage: 0.1%
     Route: 061
  4. PROACTIV MD ULTRA GENTLE CLEANSER [Concomitant]
     Indication: PIGMENTATION DISORDER
     Route: 061

REACTIONS (2)
  - Product use in unapproved indication [Recovered/Resolved]
  - Drug ineffective for unapproved indication [Recovered/Resolved]
